FAERS Safety Report 14954818 (Version 1)
Quarter: 2018Q2

REPORT INFORMATION
  Report Type: Spontaneous
  Country: ES (occurrence: ES)
  Receive Date: 20180530
  Receipt Date: 20180530
  Transmission Date: 20180711
  Serious: Yes (Hospitalization)
  Sender: FDA-Public Use
  Company Number: ES-TEVA-2018-ES-898393

PATIENT
  Age: 71 Year
  Sex: Female

DRUGS (1)
  1. AZITROMICINA (7019A) [Suspect]
     Active Substance: AZITHROMYCIN
     Indication: PHARYNGITIS
     Dosage: DOSIS ?NICA
     Route: 048
     Dates: start: 20171211, end: 20171211

REACTIONS (1)
  - Agranulocytosis [Recovered/Resolved]

NARRATIVE: CASE EVENT DATE: 20171214
